FAERS Safety Report 5197139-2 (Version None)
Quarter: 2007Q1

REPORT INFORMATION
  Report Type: 
  Country: None (occurrence: None)
  Receive Date: 20070103
  Receipt Date: 20061227
  Transmission Date: 20070707
  Serious: Yes (Death)
  Sender: FDA-Public Use
  Company Number: JP-JPN-A200603961

PATIENT
  Age: 59 Year
  Sex: Female

DRUGS (4)
  1. ZEFIX [Suspect]
     Indication: DRUG USE FOR UNKNOWN INDICATION
     Dosage: 100MG PER DAY
     Route: 048
     Dates: start: 20040123, end: 20060928
  2. HEPSERA [Concomitant]
     Dosage: 10MG PER DAY
     Route: 048
     Dates: start: 20041224, end: 20060928
  3. THALIDOMIDE [Concomitant]
     Indication: MULTIPLE MYELOMA
     Route: 065
  4. ADRIAMYCIN PFS [Concomitant]
     Route: 042

REACTIONS (3)
  - BLOOD CREATINE PHOSPHOKINASE INCREASED [None]
  - MULTIPLE MYELOMA [None]
  - MYOGLOBIN BLOOD INCREASED [None]
